FAERS Safety Report 24145262 (Version 1)
Quarter: 2024Q3

REPORT INFORMATION
  Report Type: Spontaneous
  Country: FR (occurrence: FR)
  Receive Date: 20240729
  Receipt Date: 20240729
  Transmission Date: 20241016
  Serious: Yes (Other)
  Sender: TWI PHARMACEUTICALS
  Company Number: FR-TWI PHARMACEUTICAL, INC-20240700029

PATIENT
  Age: 77 Year

DRUGS (1)
  1. TESTOSTERONE [Suspect]
     Active Substance: TESTOSTERONE
     Indication: Product used for unknown indication
     Dosage: UNK
     Route: 065

REACTIONS (1)
  - Invasive lobular breast carcinoma [Recovered/Resolved]
